FAERS Safety Report 6934994-7 (Version None)
Quarter: 2010Q3

REPORT INFORMATION
  Report Type: 
  Country: None (occurrence: None)
  Receive Date: 20100822
  Receipt Date: 20100809
  Transmission Date: 20110219
  Serious: Yes (Hospitalization)
  Sender: FDA-Public Use
  Company Number: PHFR2010GB01989

PATIENT
  Sex: Male

DRUGS (2)
  1. CLOZARIL [Suspect]
     Indication: SCHIZOPHRENIA
     Dosage: UNK
     Route: 048
     Dates: start: 20100105
  2. DIHYDROCODEINE BITARTRATE INJ [Suspect]
     Dosage: 20 X 30MG TABLETS
     Route: 048
     Dates: start: 20100809, end: 20100809

REACTIONS (1)
  - INTENTIONAL OVERDOSE [None]
